FAERS Safety Report 10388864 (Version 1)
Quarter: 2014Q1

REPORT INFORMATION
  Report Type: Spontaneous
  Country: US (occurrence: None)
  Receive Date: 20140306
  Receipt Date: 20140306
  Transmission Date: 20141002
  Serious: Yes (Hospitalization, Disabling, Other)
  Sender: FDA-Public Use
  Company Number: 163-21880-13071254

PATIENT
  Age: 72 Year
  Sex: Male

DRUGS (2)
  1. REVLIMID (LENALIDOMIDE) (25 MILLIGRAM, CAPSULES) [Suspect]
     Indication: PLASMA CELL MYELOMA
     Route: 048
     Dates: start: 201302, end: 201302
  2. KYPROLIS [Concomitant]

REACTIONS (4)
  - Fall [None]
  - Cardiac failure congestive [None]
  - Asthenia [None]
  - Drug ineffective [None]
